FAERS Safety Report 24665261 (Version 2)
Quarter: 2025Q1

REPORT INFORMATION
  Report Type: Spontaneous
  Country: CN (occurrence: CN)
  Receive Date: 20241126
  Receipt Date: 20250318
  Transmission Date: 20250408
  Serious: Yes (Other)
  Sender: ACCORD
  Company Number: None

PATIENT
  Age: 59 Year
  Sex: Female
  Weight: 45 kg

DRUGS (2)
  1. TRASTUZUMAB [Suspect]
     Active Substance: TRASTUZUMAB
     Indication: Breast cancer in situ
     Dosage: STRENGTH: 150 MG, 600 MILLIGRAM, Q3W
     Route: 058
     Dates: start: 20240322, end: 20240927
  2. PACLITAXEL [Suspect]
     Active Substance: PACLITAXEL
     Indication: Breast cancer in situ
     Dosage: 180 MILLIGRAM, Q3W, IV DRIP
     Route: 042
     Dates: start: 20240322, end: 20240322

REACTIONS (2)
  - Incorrect route of product administration [Recovering/Resolving]
  - Interstitial lung disease [Recovering/Resolving]

NARRATIVE: CASE EVENT DATE: 20241010
